FAERS Safety Report 6159033-X (Version None)
Quarter: 2009Q2

REPORT INFORMATION
  Report Type: 
  Country: None (occurrence: None)
  Receive Date: 20090417
  Receipt Date: 20090407
  Transmission Date: 20091009
  Serious: Yes (Hospitalization)
  Sender: FDA-Public Use
  Company Number: FR-PFIZER INC-2009195802

PATIENT

DRUGS (2)
  1. SUNITINIB MALATE [Suspect]
     Indication: BREAST CANCER
     Dosage: 37.5 MG, 1X/DAY
     Route: 048
     Dates: start: 20090318, end: 20090328
  2. *CAPECITABINE [Suspect]
     Indication: BREAST CANCER
     Dosage: 800 MG, 2X/DAY, DAY 1-14 EVERY 3 WEEKS
     Route: 048
     Dates: start: 20080721, end: 20090220

REACTIONS (1)
  - LUNG DISORDER [None]
